FAERS Safety Report 9286920 (Version 1)
Quarter: 2013Q2

REPORT INFORMATION
  Report Type: Spontaneous
  Country: US (occurrence: US)
  Receive Date: 20130513
  Receipt Date: 20130513
  Transmission Date: 20140414
  Serious: No
  Sender: FDA-Public Use
  Company Number: US-ASTRAZENECA-2013SE31387

PATIENT
  Sex: Male

DRUGS (3)
  1. BRILINTA [Suspect]
     Indication: ACUTE MYOCARDIAL INFARCTION
     Route: 048
     Dates: start: 201304, end: 201304
  2. BABY ASPIRIN [Suspect]
     Route: 065
  3. 3 OTHER NEW MEDICATIONS [Suspect]
     Route: 065

REACTIONS (1)
  - Swollen tongue [Recovered/Resolved]
